FAERS Safety Report 16924309 (Version 1)
Quarter: 2019Q4

REPORT INFORMATION
  Report Type: Spontaneous
  Country: FR (occurrence: FR)
  Receive Date: 20191016
  Receipt Date: 20191016
  Transmission Date: 20200122
  Serious: Yes (Other)
  Sender: FDA-Public Use
  Company Number: FR-ROCHE-2440532

PATIENT
  Age: 7 Year

DRUGS (1)
  1. ROACTEMRA [Suspect]
     Active Substance: TOCILIZUMAB
     Indication: STILL^S DISEASE
     Route: 065

REACTIONS (5)
  - Clubbing [Unknown]
  - Lung disorder [Unknown]
  - Eosinophilia [Unknown]
  - Drug hypersensitivity [Unknown]
  - Rash [Unknown]
